FAERS Safety Report 4362277-0 (Version None)
Quarter: 2004Q2

REPORT INFORMATION
  Report Type: 
  Country: None (occurrence: None)
  Receive Date: 20040517
  Receipt Date: 20040510
  Transmission Date: 20050107
  Serious: Yes (Disabling)
  Sender: FDA-Public Use
  Company Number: K200400699

PATIENT
  Sex: Female

DRUGS (1)
  1. ALTACE [Suspect]
     Dosage: ORAL
     Route: 048
     Dates: start: 20010101

REACTIONS (2)
  - CONDITION AGGRAVATED [None]
  - MYOPIA [None]
